FAERS Safety Report 9742950 (Version 1)
Quarter: 2013Q4

REPORT INFORMATION
  Report Type: Spontaneous
  Country: US (occurrence: US)
  Receive Date: 20131210
  Receipt Date: 20131210
  Transmission Date: 20140711
  Serious: No
  Sender: FDA-Public Use
  Company Number: US-TEVA-398177USA

PATIENT
  Sex: Male

DRUGS (2)
  1. BUDESONIDE [Suspect]
     Indication: RESPIRATORY DISORDER
     Route: 045
     Dates: start: 20130408, end: 20130409
  2. ALBUTEROL [Suspect]

REACTIONS (4)
  - Neurological symptom [Unknown]
  - Abnormal behaviour [Unknown]
  - Psychotic disorder [Unknown]
  - Emotional distress [Unknown]
